FAERS Safety Report 21622469 (Version 2)
Quarter: 2022Q4

REPORT INFORMATION
  Report Type: Spontaneous
  Country: RU (occurrence: None)
  Receive Date: 20221121
  Receipt Date: 20221213
  Transmission Date: 20230113
  Serious: Yes (Death, Other)
  Sender: FDA-Public Use
  Company Number: 2022A384015

PATIENT
  Age: 68 Year
  Sex: Female
  Weight: 56 kg

DRUGS (8)
  1. BRILINTA [Suspect]
     Active Substance: TICAGRELOR
     Indication: Myocardial infarction
     Route: 048
     Dates: start: 202109, end: 20221112
  2. BRILINTA [Suspect]
     Active Substance: TICAGRELOR
     Indication: Vascular stent stenosis
     Route: 048
     Dates: start: 202109, end: 20221112
  3. CLOPIDOGREL [Concomitant]
     Active Substance: CLOPIDOGREL BISULFATE
     Dosage: 300 MG
     Route: 065
  4. HEPARIN [Concomitant]
     Active Substance: HEPARIN SODIUM
     Dosage: 5000 UI
     Route: 065
  5. ENOXAPARIN SODIUM [Concomitant]
     Active Substance: ENOXAPARIN SODIUM
     Dosage: 1 MG/KG -2 TIMES
     Route: 065
  6. ASPIRIN [Concomitant]
     Active Substance: ASPIRIN
     Dosage: 100 MG
     Route: 065
     Dates: start: 202109
  7. METOPROLOL [Concomitant]
     Active Substance: METOPROLOL
     Dosage: 12.5 -3 TIMES
     Route: 065
  8. ZOCARDIS [Concomitant]
     Dosage: 12.5 -3 TIMES
     Route: 065

REACTIONS (3)
  - Subarachnoid haemorrhage [Fatal]
  - Vascular stent stenosis [Unknown]
  - Intraventricular haemorrhage [Fatal]

NARRATIVE: CASE EVENT DATE: 20220401
